FAERS Safety Report 4983056-7 (Version None)
Quarter: 2006Q2

REPORT INFORMATION
  Report Type: 
  Country: None (occurrence: None)
  Receive Date: 20060426
  Receipt Date: 20060419
  Transmission Date: 20061013
  Serious: Yes (Other)
  Sender: FDA-Public Use
  Company Number: PHEH2006US05158

PATIENT
  Age: 12 Year
  Sex: Male

DRUGS (2)
  1. FOCALIN XR [Suspect]
     Dosage: 10 MG, QD
     Route: 048
  2. ADDERALL XR 10 [Suspect]

REACTIONS (3)
  - BRADYCARDIA [None]
  - SINUS TACHYCARDIA [None]
  - SUPRAVENTRICULAR EXTRASYSTOLES [None]
